FAERS Safety Report 16809268 (Version 1)
Quarter: 2019Q4

REPORT INFORMATION
  Report Type: Spontaneous
  Country: US (occurrence: US)
  Receive Date: 20190914
  Receipt Date: 20190914
  Transmission Date: 20200122
  Serious: Yes (Other)
  Sender: FDA-Public Use
  Company Number: None

PATIENT
  Age: 51 Year
  Sex: Female

DRUGS (9)
  1. NEXIUM [Concomitant]
     Active Substance: ESOMEPRAZOLE MAGNESIUM
  2. AMLODIPINE [Concomitant]
     Active Substance: AMLODIPINE BESYLATE
  3. MAGENSIUM [Concomitant]
  4. L-TYROSINE [Concomitant]
     Active Substance: TYROSINE
  5. CYMBALTA [Suspect]
     Active Substance: DULOXETINE HYDROCHLORIDE
     Indication: BIPOLAR DISORDER
     Route: 048
  6. CYMBALTA [Concomitant]
     Active Substance: DULOXETINE HYDROCHLORIDE
  7. VITAMIN D [Concomitant]
     Active Substance: VITAMIN D NOS
  8. METHYLATED FOLATE [Concomitant]
  9. LITHIUM. [Concomitant]
     Active Substance: LITHIUM

REACTIONS (10)
  - Insomnia [None]
  - Anxiety [None]
  - Panic reaction [None]
  - Agitation [None]
  - Headache [None]
  - Paraesthesia [None]
  - Nausea [None]
  - Withdrawal syndrome [None]
  - Diarrhoea [None]
  - Pain [None]

NARRATIVE: CASE EVENT DATE: 20190912
